FAERS Safety Report 4511989-4 (Version None)
Quarter: 2004Q4

REPORT INFORMATION
  Report Type: 
  Country: None (occurrence: None)
  Receive Date: 20041129
  Receipt Date: 20040316
  Transmission Date: 20050328
  Serious: No
  Sender: FDA-Public Use
  Company Number: US-BRISTOL-MYERS SQUIBB COMPANY-12534160

PATIENT
  Age: 43 Year
  Sex: Female

DRUGS (3)
  1. SUSTIVA [Suspect]
     Indication: HIV INFECTION
     Dosage: THERAPY WAS ONGOING AT CONCEPTION.
     Route: 048
     Dates: start: 20000101, end: 20040315
  2. COMBIVIR [Suspect]
     Indication: HIV INFECTION
     Dosage: THERAPY WAS ONGOING AT CONCEPTION.
     Route: 048
     Dates: start: 20000101, end: 20040315
  3. PAXIL [Concomitant]
     Dates: start: 19960101

REACTIONS (1)
  - PREGNANCY [None]
